FAERS Safety Report 24628644 (Version 2)
Quarter: 2024Q4

REPORT INFORMATION
  Report Type: Spontaneous
  Country: US (occurrence: US)
  Receive Date: 20241117
  Receipt Date: 20241205
  Transmission Date: 20250114
  Serious: No
  Sender: BAUSCH AND LOMB
  Company Number: US-BAUSCHBL-2024BNL036000

PATIENT
  Age: 80 Year
  Sex: Male

DRUGS (3)
  1. SOOTHE HYDRATION [Suspect]
     Active Substance: POVIDONE
     Indication: Product used for unknown indication
     Route: 065
     Dates: start: 2022
  2. LATANOPROST [Suspect]
     Active Substance: LATANOPROST
     Indication: Product used for unknown indication
     Route: 065
  3. SOOTHE XP [Suspect]
     Active Substance: LIGHT MINERAL OIL\MINERAL OIL
     Indication: Intraocular pressure increased
     Dosage: 3 TIMES DAY
     Route: 047

REACTIONS (3)
  - Vision blurred [Recovered/Resolved]
  - Product use in unapproved indication [Unknown]
  - Product quality issue [Unknown]
